FAERS Safety Report 4649349-8 (Version None)
Quarter: 2005Q2

REPORT INFORMATION
  Report Type: 
  Country: None (occurrence: None)
  Receive Date: 20050429
  Receipt Date: 20050421
  Transmission Date: 20051028
  Serious: Yes (Other)
  Sender: FDA-Public Use
  Company Number: GB-ABBOTT-05P-167-0298198-00

PATIENT
  Age: 34 Year
  Sex: Male

DRUGS (2)
  1. EPILIM [Suspect]
     Indication: EPILEPSY
     Route: 065
  2. VENLAFAXINE HCL [Interacting]
     Indication: DEPRESSION
     Route: 048
     Dates: start: 20040101

REACTIONS (3)
  - DRUG INEFFECTIVE [None]
  - DRUG INTERACTION [None]
  - EPILEPSY [None]
